FAERS Safety Report 6180785-7 (Version None)
Quarter: 2009Q2

REPORT INFORMATION
  Report Type: 
  Country: None (occurrence: None)
  Receive Date: 20090506
  Receipt Date: 20090428
  Transmission Date: 20091009
  Serious: Yes (Hospitalization)
  Sender: FDA-Public Use
  Company Number: US-BIOGENIDEC-2009BI010381

PATIENT
  Age: 51 Year
  Sex: Female

DRUGS (2)
  1. AVONEX [Suspect]
     Indication: MULTIPLE SCLEROSIS
     Route: 030
     Dates: start: 19991001, end: 20071026
  2. AVONEX [Suspect]
     Route: 030
     Dates: start: 20081026

REACTIONS (3)
  - CHOLELITHIASIS [None]
  - FALL [None]
  - SPLENIC RUPTURE [None]
